FAERS Safety Report 13746672 (Version 1)
Quarter: 2017Q3

REPORT INFORMATION
  Report Type: Spontaneous
  Country: JP (occurrence: JP)
  Receive Date: 20170712
  Receipt Date: 20170712
  Transmission Date: 20171127
  Serious: Yes (Hospitalization)
  Sender: FDA-Public Use
  Company Number: JP-009507513-1707JPN000020J

PATIENT
  Age: 64 Year
  Sex: Male

DRUGS (2)
  1. ERELSA TABLETS 50MG [Suspect]
     Active Substance: ELBASVIR
     Indication: CHRONIC HEPATITIS C
     Dosage: 50 MG, QD
     Route: 048
     Dates: start: 20170417, end: 20170619
  2. GRAZYNA TABLETS 50MG [Suspect]
     Active Substance: GRAZOPREVIR
     Indication: CHRONIC HEPATITIS C
     Dosage: 100 MG, QD
     Route: 048
     Dates: start: 20170417, end: 20170619

REACTIONS (4)
  - Decreased appetite [Unknown]
  - Transaminases increased [Recovering/Resolving]
  - Blood creatinine increased [Unknown]
  - Malaise [Unknown]

NARRATIVE: CASE EVENT DATE: 20170619
